FAERS Safety Report 25987862 (Version 1)
Quarter: 2025Q4

REPORT INFORMATION
  Report Type: Spontaneous
  Country: US (occurrence: US)
  Receive Date: 20251103
  Receipt Date: 20251103
  Transmission Date: 20260118
  Serious: No
  Sender: BIOGEN
  Company Number: US-BIOGEN-2088462

PATIENT
  Age: 62 Year

DRUGS (1)
  1. INTERFERON BETA-1A [Suspect]
     Active Substance: INTERFERON BETA-1A
     Indication: Multiple sclerosis

REACTIONS (1)
  - Progressive multiple sclerosis [Unknown]

NARRATIVE: CASE EVENT DATE: 20250101
